FAERS Safety Report 9057564 (Version 1)
Quarter: 2013Q1

REPORT INFORMATION
  Report Type: Spontaneous
  Country: US (occurrence: US)
  Receive Date: 20130204
  Receipt Date: 20130204
  Transmission Date: 20140127
  Serious: No
  Sender: FDA-Public Use
  Company Number: US-PFIZER INC-2013038385

PATIENT
  Age: 65 Year
  Sex: Female

DRUGS (25)
  1. VENLAFAXINE HYDROCHLORIDE [Suspect]
     Dosage: UNK
  2. VESICARE [Concomitant]
     Dosage: 5 MG, TAKE 1 TABLET EVERY DAY IF DRY MOUTH STABLE, MAY INCREASE TO 2 TABLETS DAILY AFTER 1-2 WEEKS
     Route: 048
  3. ZOFRAN [Concomitant]
     Indication: NAUSEA
     Dosage: 4 MG, ONE TABLET EVERY DAY EVERY 6 HOURS AS NEEDED
     Route: 048
  4. AMLODIPINE BESILATE [Concomitant]
     Dosage: 10 MG, TAKE 1 TABLET EVERY DAY
     Route: 048
  5. LOSARTAN POTASSIUM [Concomitant]
     Dosage: 50 MG, TAKE 1 TABLET EVERY DAY
     Route: 048
  6. PYRIDIUM [Concomitant]
     Dosage: 200 MG, 3X/DAY AFTER MEALS
     Route: 048
  7. SIMVASTATIN [Concomitant]
     Dosage: 10 MG, TAKE 1 TABLET BY MOUTH EVERY DAY AT BEDTIME
     Route: 048
  8. METOPROLOL SUCCINATE [Concomitant]
     Dosage: 100 MG, TAKE 1 TABLET EVERY DAY
     Route: 048
  9. CETIRIZINE HYDROCHLORIDE [Concomitant]
     Dosage: 12 MG, TAKE 1 TABLET AT BEDTIME AS NEEDED
     Route: 048
  10. LANSOPRAZOLE [Concomitant]
     Dosage: 30 MG, 1 CAPSULE DAILY 15-30 MINUTES BEFORE BREAKFAST
     Route: 048
  11. FLONASE [Concomitant]
     Dosage: 50 MCG/ACT, 2 SPRAYS EA NARE
  12. LEVOTHYROXINE SODIUM [Concomitant]
     Dosage: 150 UG, 1 TABLET DAILY
     Route: 048
  13. SINEMET [Concomitant]
     Dosage: 25-100 MG, 1 TABLET NIGHTLY AS NEEDED
     Route: 048
  14. FUROSEMIDE [Concomitant]
     Dosage: 20 MG, TAKE ONE TAB LET BY MOUTH EVERY DAY
     Route: 048
  15. EFFEXOR-XR [Concomitant]
     Dosage: 150 MG, 2 TABS DAILY
     Route: 048
  16. IRON [Concomitant]
     Dosage: TAKE 1 PER DAY
     Route: 048
  17. FERROUS GLUCONATE [Concomitant]
     Dosage: TAKE 1 PER DAY
     Route: 048
  18. TRAZODONE [Concomitant]
     Dosage: 50 MG, 3 TABLETS HS
     Route: 048
  19. PERI-COLACE [Concomitant]
     Dosage: 1 TID
     Route: 048
  20. ACETYLSALICYLIC ACID [Concomitant]
     Dosage: 325 MG, 1 TAB DAILY
     Route: 048
  21. FIORICET [Concomitant]
     Dosage: 50-325-40 MG, 2 TABLETS EVERY 6 HOURS PRN
     Route: 048
  22. CALCIUM WITH VITAMIN D [Concomitant]
     Dosage: 600-200 MG-UNIT, 2 TABLETS TWICE DAILY
     Route: 048
  23. HALOPERIDOL [Concomitant]
     Dosage: 1 MG, 1 TABLET DAILY
     Route: 048
  24. ATIVAN [Concomitant]
     Dosage: 1 MG, 1 TAB UP TO 5 PER DAY
     Route: 048
  25. CENTRUM SILVER [Concomitant]
     Dosage: 1 TABLET DAILY
     Route: 048

REACTIONS (2)
  - Blood glucose decreased [Unknown]
  - Palpitations [Unknown]
